FAERS Safety Report 7313706-1 (Version None)
Quarter: 2011Q1

REPORT INFORMATION
  Report Type: 
  Country: None (occurrence: None)
  Receive Date: 20110215
  Receipt Date: 20110215
  Transmission Date: 20110831
  Serious: Yes (Hospitalization)
  Sender: FDA-Public Use
  Company Number: None

PATIENT
  Sex: Male
  Weight: 92 kg

DRUGS (2)
  1. REVLIMID [Suspect]
     Indication: MYELODYSPLASTIC SYNDROME
     Dosage: 10MG QD DAYS 1-28 PO
     Route: 048
     Dates: start: 20110124
  2. AZACITIDINE [Suspect]
     Indication: MYELODYSPLASTIC SYNDROME
     Dosage: 75MG DAYS 1-5 OF 28D CYCLE IV
     Route: 042
     Dates: start: 20110124, end: 20110128

REACTIONS (4)
  - OPPORTUNISTIC INFECTION [None]
  - ASTHENIA [None]
  - ANAEMIA [None]
  - DYSPNOEA [None]
